FAERS Safety Report 6706470-8 (Version None)
Quarter: 2010Q2

REPORT INFORMATION
  Report Type: 
  Country: None (occurrence: None)
  Receive Date: 20100503
  Receipt Date: 20081013
  Transmission Date: 20101027
  Serious: Yes (Other)
  Sender: FDA-Public Use
  Company Number: US-BAYER-200814072BCC

PATIENT
  Age: 57 Year
  Sex: Female
  Weight: 63 kg

DRUGS (1)
  1. ALEVE [Suspect]
     Indication: SWELLING
     Dosage: UNIT DOSE: 220 MG
     Route: 048

REACTIONS (1)
  - PHARYNGEAL OEDEMA [None]
